FAERS Safety Report 7063601-0 (Version None)
Quarter: 2010Q4

REPORT INFORMATION
  Report Type: 
  Country: None (occurrence: None)
  Receive Date: 20101026
  Receipt Date: 20100727
  Transmission Date: 20110411
  Serious: No
  Sender: FDA-Public Use
  Company Number: US-ABBOTT-10P-163-0661083-00

PATIENT
  Sex: Female
  Weight: 43.584 kg

DRUGS (1)
  1. LUPRON DEPOT [Suspect]
     Indication: ENDOMETRIOSIS
     Dates: start: 20100101

REACTIONS (10)
  - COUGH [None]
  - DYSMENORRHOEA [None]
  - EAR PAIN [None]
  - HEADACHE [None]
  - INAPPROPRIATE SCHEDULE OF DRUG ADMINISTRATION [None]
  - NASOPHARYNGITIS [None]
  - PAIN IN JAW [None]
  - PYREXIA [None]
  - RHINORRHOEA [None]
  - SINUSITIS [None]
